FAERS Safety Report 6815747-7 (Version None)
Quarter: 2010Q3

REPORT INFORMATION
  Report Type: 
  Country: None (occurrence: None)
  Receive Date: 20100702
  Receipt Date: 20100627
  Transmission Date: 20110219
  Serious: Yes (Other)
  Sender: FDA-Public Use
  Company Number: US-AMGEN-QUU420893

PATIENT
  Sex: Male

DRUGS (2)
  1. ENBREL [Suspect]
     Indication: RHEUMATOID ARTHRITIS
     Route: 058
     Dates: start: 20040216
  2. LEFLUNOMIDE [Concomitant]
     Route: 048

REACTIONS (8)
  - ATRIAL FIBRILLATION [None]
  - ERYTHEMA [None]
  - FALL [None]
  - FATIGUE [None]
  - NAUSEA [None]
  - OEDEMA PERIPHERAL [None]
  - PYREXIA [None]
  - VOMITING [None]
